FAERS Safety Report 19131031 (Version 1)
Quarter: 2021Q2

REPORT INFORMATION
  Report Type: Spontaneous
  Country: NL (occurrence: NL)
  Receive Date: 20210414
  Receipt Date: 20210414
  Transmission Date: 20210717
  Serious: Yes (Hospitalization, Disabling, Other)
  Sender: FDA-Public Use
  Company Number: NL-SA-2021SA118897

PATIENT
  Sex: Female
  Weight: 65 kg

DRUGS (11)
  1. CIPROFLOXACINE ZENTIVA [Suspect]
     Active Substance: CIPROFLOXACIN HYDROCHLORIDE
     Indication: DEVICE RELATED INFECTION
     Dosage: 1 DF, Q12H (2 DAILY DOSES, 10 WEEKS)
     Dates: start: 20210311, end: 2021
  2. AMIODARON [AMIODARONE HYDROCHLORIDE] [Concomitant]
     Dosage: UNK
  3. EZETIMIBE. [Concomitant]
     Active Substance: EZETIMIBE
     Dosage: UNK
  4. ISOSORBIDE MONONITRATE. [Concomitant]
     Active Substance: ISOSORBIDE MONONITRATE
     Dosage: UNK
  5. RIFAMPICIN [Suspect]
     Active Substance: RIFAMPIN
     Indication: DEVICE RELATED INFECTION
     Dosage: 1 DF, Q12H (2 DAILY DOSES, 10 WEEKS)
     Dates: start: 20210311, end: 2021
  6. AMLODIPINE [Concomitant]
     Active Substance: AMLODIPINE BESYLATE
     Dosage: UNK
  7. PANTOPRAZOLE [Concomitant]
     Active Substance: PANTOPRAZOLE
     Dosage: UNK
  8. ATORVASTATIN [Concomitant]
     Active Substance: ATORVASTATIN
     Dosage: UNK
  9. NADROPARINE [Concomitant]
     Active Substance: NADROPARIN
     Dosage: UNK
  10. CALCIUM [Concomitant]
     Active Substance: CALCIUM
     Dosage: UNK (1.25 G (GRAM) / 800 UNITS)
  11. METOPROLOL. [Concomitant]
     Active Substance: METOPROLOL
     Dosage: UNK

REACTIONS (3)
  - Vomiting [Recovering/Resolving]
  - Renal tubular necrosis [Recovering/Resolving]
  - Diarrhoea [Recovering/Resolving]

NARRATIVE: CASE EVENT DATE: 20210313
